FAERS Safety Report 20324103 (Version 1)
Quarter: 2022Q1

REPORT INFORMATION
  Report Type: Spontaneous
  Country: US (occurrence: None)
  Receive Date: 20220111
  Receipt Date: 20220111
  Transmission Date: 20220423
  Serious: Yes (Death)
  Sender: FDA-Public Use
  Company Number: None

PATIENT
  Age: 94 Year
  Sex: Female
  Weight: 49.44 kg

DRUGS (10)
  1. COUMADIN [Suspect]
     Active Substance: WARFARIN SODIUM
     Indication: Atrial fibrillation
     Dosage: ?9. STRENGTH (FOR EXAMPLE,       10. QUANTITY (FOR EXAMPLE,         11. FREQUENCY (FOR EXAMPLE,   ?1
     Dates: start: 20050118, end: 20210625
  2. LEVOTHYROXINE [Concomitant]
     Active Substance: LEVOTHYROXINE
  3. BIOPROSTHEIC (BOVINE TISSUE) AORTA VALVE [Concomitant]
  4. DEVICE [Concomitant]
     Active Substance: DEVICE
  5. LUTEIN [Concomitant]
     Active Substance: LUTEIN
  6. MINERALS\VITAMINS [Suspect]
     Active Substance: MINERALS\VITAMINS
  7. VITAMIN A [Concomitant]
     Active Substance: VITAMIN A
  8. VITAMIN D [Concomitant]
     Active Substance: VITAMIN D NOS
  9. VITAMIN C [Concomitant]
     Active Substance: ASCORBIC ACID
  10. FOLIC ACID [Suspect]
     Active Substance: FOLIC ACID

REACTIONS (5)
  - Haemorrhagic stroke [None]
  - Cerebral haemorrhage [None]
  - Arteriosclerosis coronary artery [None]
  - Hypertension [None]
  - Nephrosclerosis [None]

NARRATIVE: CASE EVENT DATE: 20210625
